FAERS Safety Report 4697248-8 (Version None)
Quarter: 2005Q2

REPORT INFORMATION
  Report Type: 
  Country: None (occurrence: None)
  Receive Date: 20050621
  Receipt Date: 20050621
  Transmission Date: 20051028
  Serious: Yes (Death)
  Sender: FDA-Public Use
  Company Number: None

PATIENT
  Age: 78 Year
  Sex: Male

DRUGS (1)
  1. COUMADIN [Suspect]
     Dosage: 2.5 MG QD PO
     Route: 048

REACTIONS (4)
  - ASTHENIA [None]
  - FALL [None]
  - HAEMORRHAGE INTRACRANIAL [None]
  - ORAL INTAKE REDUCED [None]
